FAERS Safety Report 9291101 (Version 1)
Quarter: 2012Q4

REPORT INFORMATION
  Report Type: Spontaneous
  Country: US (occurrence: None)
  Receive Date: 20121017
  Receipt Date: 20121017
  Transmission Date: 20130627
  Serious: Yes (Hospitalization)
  Sender: FDA-Public Use
  Company Number: ADR-2012-01744

PATIENT
  Age: 15 Year
  Sex: Female

DRUGS (2)
  1. BACLOFEN INTRATHECAL(BACLOFEN INJECTION) [Suspect]
     Indication: SPASTICITY
     Dosage: day
  2. BACLOFEN INTRATHECAL(BACLOFEN INJECTION) [Suspect]
     Indication: CEREBRAL PALSY
     Dosage: day

REACTIONS (4)
  - Drug ineffective [None]
  - Overdose [None]
  - Device occlusion [None]
  - Coma [None]
